FAERS Safety Report 25877528 (Version 2)
Quarter: 2025Q4

REPORT INFORMATION
  Report Type: Spontaneous
  Country: JP (occurrence: JP)
  Receive Date: 20251003
  Receipt Date: 20251015
  Transmission Date: 20260118
  Serious: Yes (Hospitalization)
  Sender: ALEXION PHARMACEUTICALS
  Company Number: JP-ASTRAZENECA-202509JPN027491JP

PATIENT
  Age: 73 Year
  Sex: Female

DRUGS (2)
  1. IMFINZI [Suspect]
     Active Substance: DURVALUMAB
     Indication: Bile duct cancer
     Route: 065
  2. IMFINZI [Suspect]
     Active Substance: DURVALUMAB
     Indication: Metastases to liver

REACTIONS (1)
  - Gastrointestinal perforation [Unknown]
